FAERS Safety Report 6007428-7 (Version None)
Quarter: 2008Q4

REPORT INFORMATION
  Report Type: 
  Country: None (occurrence: None)
  Receive Date: 20081217
  Receipt Date: 20080416
  Transmission Date: 20090506
  Serious: No
  Sender: FDA-Public Use
  Company Number: US-ASTRAZENECA-2008UW07811

PATIENT
  Sex: Male

DRUGS (10)
  1. CRESTOR [Suspect]
     Indication: HYPERCHOLESTEROLAEMIA
     Route: 048
     Dates: start: 20080414
  2. PLAVIX [Concomitant]
  3. ASPIRIN [Concomitant]
  4. EULEXIN [Concomitant]
  5. DIGITEK [Concomitant]
  6. HUMALOG [Concomitant]
  7. LANTUS [Concomitant]
  8. MEGESTROL ACETATE [Concomitant]
  9. ASCORBIC ACID [Concomitant]
  10. FERROUS SULFATE TAB [Concomitant]

REACTIONS (1)
  - DRY MOUTH [None]
